FAERS Safety Report 16722460 (Version 4)
Quarter: 2022Q1

REPORT INFORMATION
  Report Type: Spontaneous
  Country: US (occurrence: US)
  Receive Date: 20190820
  Receipt Date: 20220218
  Transmission Date: 20220423
  Serious: Yes (Hospitalization, Other)
  Sender: FDA-Public Use
  Company Number: US-BIOMARINAP-US-2019-125275

PATIENT
  Age: 19 Year
  Sex: Male

DRUGS (3)
  1. LARONIDASE [Suspect]
     Active Substance: LARONIDASE
     Indication: Mucopolysaccharidosis I
     Dosage: 52.2 MG, QW
     Route: 042
     Dates: start: 20030617
  2. LARONIDASE [Suspect]
     Active Substance: LARONIDASE
     Dosage: 49.30 UNK Q1
     Route: 041
     Dates: start: 20170810
  3. LARONIDASE [Suspect]
     Active Substance: LARONIDASE
     Dosage: 52.2 MG, QW
     Route: 041
     Dates: end: 20201217

REACTIONS (10)
  - Back pain [Unknown]
  - Bacterial infection [Unknown]
  - Fluid retention [Recovered/Resolved]
  - Pain [Recovering/Resolving]
  - Gait disturbance [Recovering/Resolving]
  - COVID-19 [Unknown]
  - SARS-CoV-2 test false positive [Unknown]
  - Central venous catheter removal [Unknown]
  - Product dose omission issue [Unknown]
  - Device deposit issue [Unknown]

NARRATIVE: CASE EVENT DATE: 20190728
